FAERS Safety Report 12443974 (Version 1)
Quarter: 2016Q2

REPORT INFORMATION
  Report Type: Spontaneous
  Country: US (occurrence: US)
  Receive Date: 20160607
  Receipt Date: 20160607
  Transmission Date: 20160815
  Serious: No
  Sender: FDA-Public Use
  Company Number: US-SA-2016SA098231

PATIENT
  Age: 67 Year
  Sex: Male

DRUGS (2)
  1. SOLOSTAR [Suspect]
     Active Substance: DEVICE
     Indication: TYPE 2 DIABETES MELLITUS
     Dates: start: 2015
  2. TOUJEO [Suspect]
     Active Substance: INSULIN GLARGINE
     Indication: TYPE 2 DIABETES MELLITUS
     Dosage: DOSE: 20 UNITS (SOMETIMES 24 DEPENDING UPON BS)
     Route: 065
     Dates: start: 2015

REACTIONS (4)
  - Device issue [Unknown]
  - Product use issue [Unknown]
  - Blood glucose increased [Unknown]
  - Wrong technique in product usage process [Unknown]
